FAERS Safety Report 25399196 (Version 1)
Quarter: 2025Q2

REPORT INFORMATION
  Report Type: Report from Study
  Country: US (occurrence: US)
  Receive Date: 20250605
  Receipt Date: 20250605
  Transmission Date: 20250717
  Serious: Yes (Other)
  Sender: ACADIA PHARMACEUTICALS
  Company Number: US-ACADIA PHARMACEUTICALS INC.-ACA-2025-PIM-006396

PATIENT
  Sex: Male

DRUGS (13)
  1. NUPLAZID [Suspect]
     Active Substance: PIMAVANSERIN TARTRATE
     Indication: Parkinson^s disease psychosis
     Dosage: 34 MILLIGRAM, QD
     Dates: end: 20250527
  2. TAMSULOSIN HYDROCHLORIDE [Concomitant]
     Active Substance: TAMSULOSIN HYDROCHLORIDE
  3. ASPIRIN [Concomitant]
     Active Substance: ASPIRIN
  4. CITRULLINE [Concomitant]
     Active Substance: CITRULLINE
  5. AMANTADINE HYDROCHLORIDE [Concomitant]
     Active Substance: AMANTADINE HYDROCHLORIDE
  6. CARBIDOPA\LEVODOPA [Concomitant]
     Active Substance: CARBIDOPA\LEVODOPA
  7. GLIMEPIRIDE [Concomitant]
     Active Substance: GLIMEPIRIDE
  8. LOSARTAN POTASSIUM [Concomitant]
     Active Substance: LOSARTAN POTASSIUM
  9. METFORMIN HYDROCHLORIDE [Concomitant]
     Active Substance: METFORMIN HYDROCHLORIDE
  10. PRAMIPEXOLE [Concomitant]
     Active Substance: PRAMIPEXOLE
  11. SELEGILINE HYDROCHLORIDE [Concomitant]
     Active Substance: SELEGILINE HYDROCHLORIDE
  12. ATORVASTATIN [Concomitant]
     Active Substance: ATORVASTATIN
  13. ALLERGY [CHLORPHENAMINE MALEATE] [Concomitant]

REACTIONS (14)
  - Hallucination, visual [Unknown]
  - Hallucination [Not Recovered/Not Resolved]
  - Fear of falling [Unknown]
  - Disorganised speech [Unknown]
  - Disorientation [Unknown]
  - Decreased appetite [Not Recovered/Not Resolved]
  - Loss of personal independence in daily activities [Not Recovered/Not Resolved]
  - Illness [Unknown]
  - Sleep talking [Unknown]
  - Posture abnormal [Unknown]
  - Gait disturbance [Unknown]
  - Constipation [Unknown]
  - Fall [Unknown]
  - Product dose omission issue [Unknown]
